FAERS Safety Report 7335254-5 (Version None)
Quarter: 2011Q1

REPORT INFORMATION
  Report Type: 
  Country: None (occurrence: None)
  Receive Date: 20110307
  Receipt Date: 20110228
  Transmission Date: 20110831
  Serious: No
  Sender: FDA-Public Use
  Company Number: US-PFIZER INC-2010182311

PATIENT
  Sex: Female
  Weight: 86 kg

DRUGS (5)
  1. PRAVASTATIN [Concomitant]
     Indication: BLOOD CHOLESTEROL INCREASED
     Dosage: UNK
  2. ZYVOX [Suspect]
     Indication: URINARY TRACT INFECTION
     Dosage: 600 MG, 2X/DAY
     Route: 048
     Dates: start: 20101228
  3. TAMBOCOR [Concomitant]
     Indication: ATRIAL FIBRILLATION
     Dosage: UNK
  4. FOLIC ACID [Concomitant]
     Dosage: UNK
  5. ATENOLOL [Concomitant]
     Indication: HYPERTENSION
     Dosage: UNK

REACTIONS (2)
  - ABDOMINAL DISCOMFORT [None]
  - GASTROINTESTINAL MOTILITY DISORDER [None]
